FAERS Safety Report 5369094-3 (Version None)
Quarter: 2007Q2

REPORT INFORMATION
  Report Type: 
  Country: None (occurrence: None)
  Receive Date: 20070625
  Receipt Date: 20070420
  Transmission Date: 20071010
  Serious: Yes (Hospitalization)
  Sender: FDA-Public Use
  Company Number: US-ASTRAZENECA-2007UW00615

PATIENT
  Age: 53 Year
  Sex: Male
  Weight: 117.9 kg

DRUGS (2)
  1. CRESTOR [Suspect]
     Indication: BLOOD CHOLESTEROL
     Route: 048
     Dates: start: 20060718, end: 20060101
  2. CRESTOR [Suspect]
     Route: 048
     Dates: start: 20060921, end: 20070110

REACTIONS (7)
  - BACK PAIN [None]
  - DIZZINESS [None]
  - DYSPNOEA [None]
  - HIGH DENSITY LIPOPROTEIN DECREASED [None]
  - HYPERTENSION [None]
  - PALPITATIONS [None]
  - SINUS HEADACHE [None]
